FAERS Safety Report 20081289 (Version 1)
Quarter: 2021Q4

REPORT INFORMATION
  Report Type: Spontaneous
  Country: FR (occurrence: FR)
  Receive Date: 20211117
  Receipt Date: 20211117
  Transmission Date: 20220303
  Serious: Yes (Life-Threatening, Other)
  Sender: FDA-Public Use
  Company Number: None

PATIENT
  Age: 45 Year
  Sex: Female
  Weight: 37 kg

DRUGS (9)
  1. ALPRAZOLAM [Suspect]
     Active Substance: ALPRAZOLAM
     Dosage: 25 TABS OF 0.25 MG + 28 TABS OF 7.5 MG (236.25 MG),THERAPY END DATE :NOT ASKED
     Route: 065
     Dates: start: 20210602
  2. DIAZEPAM [Suspect]
     Active Substance: DIAZEPAM
     Dosage: 40CP OF 20 MG,THERAPY END DATE :NOT ASKED
     Route: 065
     Dates: start: 20210602
  3. ZOLPIDEM [Suspect]
     Active Substance: ZOLPIDEM TARTRATE
     Dosage: 14 TABS OF 10 MG ,THERAPY END DATE :NOT ASKED
     Route: 065
     Dates: start: 20210602
  4. ZOPICLONE [Suspect]
     Active Substance: ZOPICLONE
     Dosage: 34 TABS OF 7.5 MG,THERAPY END DATE :NOT ASKED
     Route: 065
     Dates: start: 20210602
  5. LORAZEPAM [Suspect]
     Active Substance: LORAZEPAM
     Dosage: 120 TABS OF 1MG,THERAPY END DATE :NOT ASKED
     Route: 065
     Dates: start: 20210602
  6. HEROIN [Suspect]
     Active Substance: DIAMORPHINE
     Dosage: 200 MILLIGRAM DAILY; OF HEROIN FOR 6 WEEKS,THERAPY END DATE:NOT ASKED
     Route: 045
     Dates: start: 202104
  7. VALIUM [Suspect]
     Active Substance: DIAZEPAM
     Dosage: 10 ML OF 1% VALIUM, THERAPY END DATE :NOT ASKED
     Route: 065
     Dates: start: 20210602
  8. OXAZEPAM [Suspect]
     Active Substance: OXAZEPAM
     Dosage: 108 TABS OF 10 MG,THERAPY END DATE:NOT ASKED
     Route: 065
     Dates: start: 20210602
  9. LORMETAZEPAM [Suspect]
     Active Substance: LORMETAZEPAM
     Dosage: 14 TABS OF 1 MG ,THERAPY END DATE :NOT ASKED
     Route: 065
     Dates: start: 20210602

REACTIONS (6)
  - Intentional product misuse [Recovering/Resolving]
  - Drug abuse [Recovering/Resolving]
  - Bradycardia [Recovered/Resolved]
  - Coma [Recovered/Resolved]
  - Hypotension [Recovered/Resolved]
  - Miosis [Recovered/Resolved]

NARRATIVE: CASE EVENT DATE: 20210602
